FAERS Safety Report 6569040-0 (Version None)
Quarter: 2010Q1

REPORT INFORMATION
  Report Type: 
  Country: None (occurrence: None)
  Receive Date: 20100203
  Receipt Date: 20100129
  Transmission Date: 20100710
  Serious: Yes (Hospitalization)
  Sender: FDA-Public Use
  Company Number: US-GILEAD-2010-0026778

PATIENT
  Sex: Female
  Weight: 99.653 kg

DRUGS (9)
  1. LETAIRIS [Suspect]
     Indication: PULMONARY ARTERIAL HYPERTENSION
     Route: 048
     Dates: start: 20090917
  2. COUMADIN [Concomitant]
  3. CIPRO XR [Concomitant]
  4. HYDROMORPHONE HYDROCHLORIDE [Concomitant]
  5. AMOXICILLIN [Concomitant]
  6. SENNA [Concomitant]
  7. MORPHINE SULFATE [Concomitant]
  8. ZANTAC [Concomitant]
  9. BENADRYL [Concomitant]

REACTIONS (3)
  - BACTERIAL INFECTION [None]
  - CHILLS [None]
  - PYREXIA [None]
